FAERS Safety Report 13725865 (Version 1)
Quarter: 2017Q3

REPORT INFORMATION
  Report Type: Spontaneous
  Country: GB (occurrence: GB)
  Receive Date: 20170706
  Receipt Date: 20170706
  Transmission Date: 20171127
  Serious: Yes (Disabling, Other)
  Sender: FDA-Public Use
  Company Number: PHHY2017GB094830

PATIENT
  Sex: Female

DRUGS (2)
  1. BISOPROLOL FUMARATE. [Suspect]
     Active Substance: BISOPROLOL FUMARATE
     Indication: PRODUCT USED FOR UNKNOWN INDICATION
     Route: 065
  2. RAMIPRIL. [Suspect]
     Active Substance: RAMIPRIL
     Indication: PRODUCT USED FOR UNKNOWN INDICATION
     Route: 065

REACTIONS (23)
  - Dyspnoea [Unknown]
  - Feeling abnormal [Unknown]
  - Gait disturbance [Unknown]
  - Yellow skin [Unknown]
  - Vitamin D deficiency [Unknown]
  - Bedridden [Unknown]
  - Premature ageing [Unknown]
  - Malaise [Unknown]
  - Constipation [Unknown]
  - Fatigue [Unknown]
  - Autoimmune disorder [Unknown]
  - Irritability [Unknown]
  - Abdominal distension [Unknown]
  - Chest pain [Unknown]
  - Restlessness [Unknown]
  - Disturbance in attention [Unknown]
  - Cardiac disorder [Unknown]
  - Skin exfoliation [Unknown]
  - Alopecia [Unknown]
  - Vitamin B12 increased [Unknown]
  - Feeling of body temperature change [Unknown]
  - Pain [Unknown]
  - Dry skin [Unknown]

NARRATIVE: CASE EVENT DATE: 2014
